FAERS Safety Report 12221880 (Version 1)
Quarter: 2016Q1

REPORT INFORMATION
  Report Type: Spontaneous
  Country: US (occurrence: US)
  Receive Date: 20160330
  Receipt Date: 20160330
  Transmission Date: 20160526
  Serious: No
  Sender: FDA-Public Use
  Company Number: US-MYLANLABS-2015M1012766

PATIENT
  Sex: Male

DRUGS (2)
  1. FENTANYL. [Suspect]
     Active Substance: FENTANYL
     Dosage: 25 ?G, QH CHANGE EVERY 4 DAYS
     Route: 062
  2. FENTANYL. [Suspect]
     Active Substance: FENTANYL
     Dosage: 50 ?G, QH CHANGE EVERY 4 DAYS
     Route: 062

REACTIONS (2)
  - Drug prescribing error [Not Recovered/Not Resolved]
  - Pain [Not Recovered/Not Resolved]
